FAERS Safety Report 25878347 (Version 1)
Quarter: 2025Q4

REPORT INFORMATION
  Report Type: Spontaneous
  Country: EU (occurrence: EU)
  Receive Date: 20251003
  Receipt Date: 20251003
  Transmission Date: 20260118
  Serious: Yes (Other)
  Sender: ALEXION PHARMACEUTICALS
  Company Number: None

PATIENT
  Age: 51 Year
  Sex: Female
  Weight: 71 kg

DRUGS (1)
  1. LYNPARZA [Suspect]
     Active Substance: OLAPARIB
     Indication: Ovarian cancer

REACTIONS (3)
  - Asthenia [Recovering/Resolving]
  - Anaemia [Recovering/Resolving]
  - Exposure during pregnancy [Unknown]

NARRATIVE: CASE EVENT DATE: 20210917
